FAERS Safety Report 7386369-7 (Version None)
Quarter: 2011Q1

REPORT INFORMATION
  Report Type: 
  Country: None (occurrence: None)
  Receive Date: 20110331
  Receipt Date: 20110325
  Transmission Date: 20110831
  Serious: Yes (Hospitalization, Other)
  Sender: FDA-Public Use
  Company Number: US-ABBOTT-11P-163-0714650-00

PATIENT
  Age: 64 Year
  Sex: Female

DRUGS (16)
  1. LYRICA [Concomitant]
     Indication: PRODUCT USED FOR UNKNOWN INDICATION
  2. ACTONEL [Concomitant]
     Indication: OSTEOARTHRITIS
  3. LEVOTHYROXINE SODIUM [Concomitant]
     Indication: HYPOTHYROIDISM
  4. AMBIEN [Concomitant]
     Indication: INSOMNIA
  5. LASIX [Concomitant]
     Indication: HYPERTENSION
  6. MULTI-VITAMIN [Concomitant]
     Indication: VITAMIN SUPPLEMENTATION
  7. CELEBREX [Concomitant]
     Indication: RHEUMATOID ARTHRITIS
  8. PEPCID [Concomitant]
     Indication: GASTRITIS
  9. XANAX [Concomitant]
     Indication: ANXIETY
  10. PREDNISONE [Concomitant]
     Indication: RHEUMATOID ARTHRITIS
  11. KLOR-CON [Concomitant]
     Indication: MINERAL SUPPLEMENTATION
  12. CRESTOR [Concomitant]
     Indication: BLOOD CHOLESTEROL INCREASED
  13. DOXYCYCLINE [Concomitant]
     Indication: PRODUCT USED FOR UNKNOWN INDICATION
  14. HUMIRA [Suspect]
     Indication: RHEUMATOID ARTHRITIS
  15. ARAVA [Concomitant]
     Indication: RHEUMATOID ARTHRITIS
  16. CALCIUM W/VITAMIN D [Concomitant]
     Indication: MINERAL SUPPLEMENTATION

REACTIONS (4)
  - POSTERIOR REVERSIBLE ENCEPHALOPATHY SYNDROME [None]
  - BLINDNESS [None]
  - DEAFNESS [None]
  - GRAND MAL CONVULSION [None]
